FAERS Safety Report 9500150 (Version 2)
Quarter: 2013Q4

REPORT INFORMATION
  Report Type: Report from Study
  Country: US (occurrence: US)
  Receive Date: 20130905
  Receipt Date: 20131008
  Transmission Date: 20140711
  Serious: Yes (Death, Other)
  Sender: FDA-Public Use
  Company Number: PHEH2013US018600

PATIENT
  Age: 78 Year
  Sex: Male

DRUGS (1)
  1. AFINITOR [Suspect]
     Indication: RENAL CANCER
     Dosage: UNK UKN, UNK
     Route: 048
     Dates: start: 20130422

REACTIONS (3)
  - Death [Fatal]
  - Renal cell carcinoma [Unknown]
  - Malignant neoplasm progression [Unknown]
